FAERS Safety Report 7112562-4 (Version None)
Quarter: 2010Q4

REPORT INFORMATION
  Report Type: 
  Country: None (occurrence: None)
  Receive Date: 20101119
  Receipt Date: 20100511
  Transmission Date: 20110411
  Serious: No
  Sender: FDA-Public Use
  Company Number: US-TEVA-234764USA

PATIENT
  Sex: Female
  Weight: 86.26 kg

DRUGS (8)
  1. ALBUTEROL SULFATE AUTOHALER [Suspect]
     Indication: ASTHMA
     Dosage: 2 PUFFS Q 8 HRS, TID
     Route: 055
  2. ALBUTEROL SULFATE AUTOHALER [Suspect]
     Indication: DYSPNOEA
  3. ATORVASTATIN CALCIUM [Concomitant]
  4. ZOLPIDEM TARTRATE [Concomitant]
     Indication: SLEEP DISORDER
  5. ANTIDEPRESSANTS [Concomitant]
  6. WARFARIN SODIUM [Concomitant]
  7. OMEPRAZOLE [Concomitant]
     Indication: OESOPHAGEAL DISORDER
  8. OMEPRAZOLE [Concomitant]
     Indication: GASTROOESOPHAGEAL REFLUX DISEASE

REACTIONS (2)
  - DRUG INEFFECTIVE [None]
  - DYSPNOEA [None]
